FAERS Safety Report 6126416-3 (Version None)
Quarter: 2009Q1

REPORT INFORMATION
  Report Type: 
  Country: None (occurrence: None)
  Receive Date: 20090320
  Receipt Date: 20090311
  Transmission Date: 20090719
  Serious: Yes (Other)
  Sender: FDA-Public Use
  Company Number: GB-BAYER-GB-2007-030150

PATIENT
  Age: 53 Year
  Sex: Female

DRUGS (1)
  1. MIRENA [Suspect]
     Indication: DRUG USE FOR UNKNOWN INDICATION
     Route: 015
     Dates: start: 20020328, end: 20070611

REACTIONS (7)
  - ANXIETY [None]
  - COMPLICATION OF DEVICE REMOVAL [None]
  - DEPRESSION [None]
  - DEVICE BREAKAGE [None]
  - IUCD COMPLICATION [None]
  - PROCEDURAL PAIN [None]
  - SEXUAL DYSFUNCTION [None]
